FAERS Safety Report 12290131 (Version 18)
Quarter: 2021Q3

REPORT INFORMATION
  Report Type: Spontaneous
  Country: BR (occurrence: BR)
  Receive Date: 20160421
  Receipt Date: 20210813
  Transmission Date: 20211014
  Serious: Yes (Other)
  Sender: FDA-Public Use
  Company Number: BR-GLAXOSMITHKLINE-BR2016GSK011740

PATIENT
  Sex: Female
  Weight: 82 kg

DRUGS (4)
  1. AZATHIOPRINE. [Concomitant]
     Active Substance: AZATHIOPRINE
     Indication: PRODUCT USED FOR UNKNOWN INDICATION
     Dosage: UNK
  2. BENLYSTA [Suspect]
     Active Substance: BELIMUMAB
     Indication: SYSTEMIC LUPUS ERYTHEMATOSUS
     Dosage: UNK
     Dates: start: 20150914
  3. NAPRIX [Concomitant]
     Active Substance: RAMIPRIL
     Indication: CARDIAC DISORDER
     Dosage: UNK
  4. PREDNISONE. [Concomitant]
     Active Substance: PREDNISONE
     Indication: PRODUCT USED FOR UNKNOWN INDICATION
     Dosage: 20 MG, UNK

REACTIONS (30)
  - Immunodeficiency [Not Recovered/Not Resolved]
  - Somnolence [Unknown]
  - Feeling abnormal [Unknown]
  - Pain [Unknown]
  - Onychoclasis [Not Recovered/Not Resolved]
  - Eye pain [Not Recovered/Not Resolved]
  - Scleritis [Not Recovered/Not Resolved]
  - Nephritis [Not Recovered/Not Resolved]
  - Alopecia [Unknown]
  - Dizziness [Unknown]
  - Oral herpes [Recovered/Resolved]
  - Eye inflammation [Not Recovered/Not Resolved]
  - Product dose omission issue [Not Recovered/Not Resolved]
  - Drug ineffective [Unknown]
  - Systemic lupus erythematosus [Not Recovered/Not Resolved]
  - Nervousness [Unknown]
  - Product availability issue [Unknown]
  - Product storage error [Unknown]
  - Cerebrovascular accident [Unknown]
  - Arthralgia [Not Recovered/Not Resolved]
  - Weight increased [Unknown]
  - Ill-defined disorder [Unknown]
  - Inappropriate schedule of product administration [Recovered/Resolved]
  - Masticatory pain [Not Recovered/Not Resolved]
  - Circumstance or information capable of leading to medication error [Unknown]
  - Joint swelling [Not Recovered/Not Resolved]
  - Herpes zoster [Unknown]
  - Asthenia [Not Recovered/Not Resolved]
  - Migraine [Unknown]
  - Intentional product misuse [Unknown]

NARRATIVE: CASE EVENT DATE: 2021
